FAERS Safety Report 19459528 (Version 1)
Quarter: 2021Q2

REPORT INFORMATION
  Report Type: Spontaneous
  Country: US (occurrence: US)
  Receive Date: 20210624
  Receipt Date: 20210624
  Transmission Date: 20210717
  Serious: No
  Sender: FDA-Public Use
  Company Number: US-B.I. PHARMACEUTICALS,INC./RIDGEFIELD-2021-BI-095020

PATIENT
  Sex: Female

DRUGS (1)
  1. SPIRIVA RESPIMAT [Suspect]
     Active Substance: TIOTROPIUM BROMIDE
     Indication: ASTHMA
     Dosage: 2 SPRAYS QD, 2.5MCG/ACTUATION
     Dates: start: 20210330

REACTIONS (2)
  - Off label use [Not Recovered/Not Resolved]
  - Dysphonia [Recovered/Resolved]

NARRATIVE: CASE EVENT DATE: 20210330
